FAERS Safety Report 6278232-X (Version None)
Quarter: 2009Q3

REPORT INFORMATION
  Report Type: 
  Country: None (occurrence: None)
  Receive Date: 20090720
  Receipt Date: 20090706
  Transmission Date: 20100115
  Serious: Yes (Other)
  Sender: FDA-Public Use
  Company Number: 2009-GWUS-0457

PATIENT
  Age: 76 Year
  Sex: Male

DRUGS (2)
  1. NITROGLYCERIN [Suspect]
     Indication: PAIN
     Dosage: TRANSDERMAL
     Route: 062
  2. MORPHINE [Concomitant]

REACTIONS (5)
  - HAEMOGLOBIN DECREASED [None]
  - MYOCARDIAL INFARCTION [None]
  - PULMONARY OEDEMA [None]
  - RIGHT VENTRICULAR FAILURE [None]
  - VENTRICULAR DYSFUNCTION [None]
